FAERS Safety Report 7937360-0 (Version None)
Quarter: 2011Q4

REPORT INFORMATION
  Report Type: 
  Country: None (occurrence: None)
  Receive Date: 20111123
  Receipt Date: 20111115
  Transmission Date: 20120403
  Serious: Yes (Other)
  Sender: FDA-Public Use
  Company Number: CA-BAXTER-2011BH036459

PATIENT
  Age: 54 Year
  Sex: Female

DRUGS (4)
  1. DABIGATRAN [Concomitant]
     Indication: ATRIAL FIBRILLATION
     Route: 048
     Dates: start: 20110501
  2. GAMMAGARD LIQUID [Suspect]
     Indication: MULTIFOCAL MOTOR NEUROPATHY
     Route: 042
     Dates: start: 20090101
  3. DILTIAZEM HCL [Concomitant]
     Indication: PRODUCT USED FOR UNKNOWN INDICATION
     Route: 048
  4. GAMMAGARD LIQUID [Suspect]
     Route: 042
     Dates: start: 20110701

REACTIONS (1)
  - VENTRICULAR EXTRASYSTOLES [None]
